FAERS Safety Report 9786884 (Version 1)
Quarter: 2013Q4

REPORT INFORMATION
  Report Type: Report from Study
  Country: DE (occurrence: DE)
  Receive Date: 20131227
  Receipt Date: 20131227
  Transmission Date: 20140711
  Serious: Yes (Hospitalization)
  Sender: FDA-Public Use
  Company Number: DE-ABBVIE-13P-062-1182066-00

PATIENT
  Sex: Male
  Weight: 105 kg

DRUGS (1)
  1. HUMIRA [Suspect]
     Indication: PSORIASIS
     Route: 058
     Dates: start: 20130111

REACTIONS (2)
  - Calculus ureteric [Recovered/Resolved]
  - Urosepsis [Recovered/Resolved]
